FAERS Safety Report 4776752-8 (Version None)
Quarter: 2005Q3

REPORT INFORMATION
  Report Type: 
  Country: None (occurrence: None)
  Receive Date: 20050923
  Receipt Date: 20050912
  Transmission Date: 20060218
  Serious: Yes (Hospitalization)
  Sender: FDA-Public Use
  Company Number: PHNU2005DE03140

PATIENT
  Age: 54 Year
  Sex: Male
  Weight: 76 kg

DRUGS (1)
  1. MYFORTIC [Suspect]
     Indication: RENAL TRANSPLANT
     Dosage: 180 MG DAILY
     Route: 048
     Dates: start: 20050811

REACTIONS (6)
  - CHOLECYSTECTOMY [None]
  - DEHYDRATION [None]
  - DIARRHOEA [None]
  - PNEUMONIA [None]
  - RENAL DISORDER [None]
  - TENDON DISORDER [None]
